FAERS Safety Report 14033181 (Version 1)
Quarter: 2017Q4

REPORT INFORMATION
  Report Type: Spontaneous
  Country: US (occurrence: US)
  Receive Date: 20171002
  Receipt Date: 20171002
  Transmission Date: 20180321
  Serious: Yes (Life-Threatening, Hospitalization, Other)
  Sender: FDA-Public Use
  Company Number: None

PATIENT
  Age: 73 Year
  Sex: Female
  Weight: 83.25 kg

DRUGS (18)
  1. ASPIRIN 81 [Concomitant]
     Active Substance: ASPIRIN
  2. MULTI-VITAMIN [Concomitant]
     Active Substance: .ALPHA.-TOCOPHEROL ACETATE, DL-\ASCORBIC ACID\CYANOCOBALAMIN\FLUORIDE ION\FOLIC ACID\NIACIN\PYRIDOXINE\RIBOFLAVIN\THIAMINE\VITAMIN A\VITAMIN D
  3. TORADOL [Suspect]
     Active Substance: KETOROLAC TROMETHAMINE
     Indication: VIRAL INFECTION
     Dosage: ?          QUANTITY:1 INJECTION(S);OTHER FREQUENCY:ONCE;?
     Route: 030
  4. IRON [Concomitant]
     Active Substance: IRON
  5. METFORMIN [Concomitant]
     Active Substance: METFORMIN HYDROCHLORIDE
  6. CALCIUM [Concomitant]
     Active Substance: CALCIUM
  7. TRIAMCINOLONE [Concomitant]
     Active Substance: TRIAMCINOLONE
  8. NATEGLINIDINE [Concomitant]
  9. LOSARTAN. [Concomitant]
     Active Substance: LOSARTAN
  10. BASAGLAR SIMVASTATIN [Concomitant]
  11. AMLODIPINE [Concomitant]
     Active Substance: AMLODIPINE BESYLATE
  12. FISH OIL [Concomitant]
     Active Substance: FISH OIL
  13. PROBIOTIC [Concomitant]
     Active Substance: PROBIOTICS NOS
  14. MAGNESIUM D3 [Concomitant]
  15. METOPROLOL. [Concomitant]
     Active Substance: METOPROLOL
  16. COQ10 [Concomitant]
     Active Substance: UBIDECARENONE
  17. TORADOL [Suspect]
     Active Substance: KETOROLAC TROMETHAMINE
     Indication: HEADACHE
     Dosage: ?          QUANTITY:1 INJECTION(S);OTHER FREQUENCY:ONCE;?
     Route: 030
  18. FOLIC ACID. [Concomitant]
     Active Substance: FOLIC ACID

REACTIONS (7)
  - Troponin increased [None]
  - Mental impairment [None]
  - Visual impairment [None]
  - Contraindicated drug prescribed [None]
  - Confusional state [None]
  - Drug ineffective [None]
  - Contraindicated product administered [None]

NARRATIVE: CASE EVENT DATE: 20170823
